FAERS Safety Report 21106395 (Version 10)
Quarter: 2023Q1

REPORT INFORMATION
  Report Type: Spontaneous
  Country: US (occurrence: US)
  Receive Date: 20220720
  Receipt Date: 20230201
  Transmission Date: 20230417
  Serious: No
  Sender: FDA-Public Use
  Company Number: US-PFIZER INC-PV202200026386

PATIENT
  Age: 78 Year
  Sex: Female

DRUGS (2)
  1. IBRANCE [Suspect]
     Active Substance: PALBOCICLIB
     Dosage: 100 MG
  2. IBRANCE [Suspect]
     Active Substance: PALBOCICLIB
     Dosage: 125 MG

REACTIONS (16)
  - Neoplasm progression [Unknown]
  - Memory impairment [Unknown]
  - Fatigue [Unknown]
  - Vertigo [Unknown]
  - Dizziness [Unknown]
  - Aphonia [Unknown]
  - Drug hypersensitivity [Unknown]
  - Decreased interest [Unknown]
  - Mood altered [Unknown]
  - Psychiatric symptom [Unknown]
  - Hypoacusis [Unknown]
  - Anaemia [Unknown]
  - Malaise [Unknown]
  - Pharyngeal disorder [Unknown]
  - Feeling abnormal [Unknown]
  - Dysphonia [Unknown]
